FAERS Safety Report 4527111-4 (Version None)
Quarter: 2004Q4

REPORT INFORMATION
  Report Type: 
  Country: None (occurrence: None)
  Receive Date: 20041201
  Receipt Date: 20040928
  Transmission Date: 20050328
  Serious: Yes (Other)
  Sender: FDA-Public Use
  Company Number: US093629

PATIENT
  Age: 52 Year
  Sex: Female

DRUGS (4)
  1. ENBREL [Suspect]
     Indication: RHEUMATOID ARTHRITIS
     Dosage: 25 MG, 2 IN 1 WEEKS, SC
     Route: 058
     Dates: start: 20030301, end: 20040923
  2. VERAPAMIL HYDROCHLORIDE [Concomitant]
  3. MELOXICAM [Concomitant]
  4. LEVOXYL [Concomitant]

REACTIONS (1)
  - CUTANEOUS VASCULITIS [None]
